FAERS Safety Report 24549168 (Version 1)
Quarter: 2024Q4

REPORT INFORMATION
  Report Type: Spontaneous
  Country: US (occurrence: US)
  Receive Date: 20241025
  Receipt Date: 20241025
  Transmission Date: 20250114
  Serious: Yes (Hospitalization, Other)
  Sender: DR REDDYS
  Company Number: None

PATIENT
  Age: 61 Year
  Sex: Male

DRUGS (1)
  1. HEPARIN [Suspect]
     Active Substance: HEPARIN SODIUM
     Indication: Product used for unknown indication
     Route: 058

REACTIONS (7)
  - Ocular ischaemic syndrome [Recovering/Resolving]
  - Heparin-induced thrombocytopenia [Recovering/Resolving]
  - Ischaemic stroke [Recovering/Resolving]
  - Embolic stroke [Recovering/Resolving]
  - Aortic thrombosis [Recovering/Resolving]
  - Vascular stent occlusion [Recovering/Resolving]
  - Disease recurrence [Recovering/Resolving]
